FAERS Safety Report 7788410-6 (Version None)
Quarter: 2011Q3

REPORT INFORMATION
  Report Type: 
  Country: None (occurrence: None)
  Receive Date: 20110928
  Receipt Date: 20110902
  Transmission Date: 20111222
  Serious: Yes (Hospitalization)
  Sender: FDA-Public Use
  Company Number: JP-20110029

PATIENT
  Age: 65 Year
  Sex: Male

DRUGS (7)
  1. FLMOX (CEFCAPENE HYDROCHLORIDE HYDRATE) [Concomitant]
  2. CEFAMZIN (CEFAMZIN SODIUM) [Concomitant]
  3. (LIPIODOL ULTRA FLUIDE) (ETHIODIZED OIL) [Suspect]
     Indication: LUNG DISORDER
     Dosage: 0.6 ML (0.3 ML, 2 IN 1 D), INTRATUMOR
     Route: 036
     Dates: start: 20110802, end: 20110802
  4. AMOBAN (ZOPICLONE) (ZOPICLONE) [Concomitant]
  5. MUCOSTA (REBAMIPIDE) [Concomitant]
  6. PURSENND (SENNOSIDE) [Concomitant]
  7. LOXOPROFEN (LOXOPROFEN SODIUM HYDRATE) [Concomitant]

REACTIONS (4)
  - OFF LABEL USE [None]
  - ALVEOLITIS ALLERGIC [None]
  - DRUG ADMINISTRATION ERROR [None]
  - PNEUMONIA [None]
